FAERS Safety Report 8950924 (Version 1)
Quarter: 2012Q4

REPORT INFORMATION
  Report Type: Spontaneous
  Country: US (occurrence: None)
  Receive Date: 20121130
  Receipt Date: 20121130
  Transmission Date: 20130627
  Serious: Yes (Life-Threatening)
  Sender: FDA-Public Use
  Company Number: None

PATIENT
  Age: 52 Year
  Sex: Male
  Weight: 144.5 kg

DRUGS (1)
  1. NALOXONE [Suspect]

REACTIONS (2)
  - Altered state of consciousness [None]
  - Convulsion [None]
